FAERS Safety Report 7025725-3 (Version None)
Quarter: 2010Q4

REPORT INFORMATION
  Report Type: 
  Country: None (occurrence: None)
  Receive Date: 20101004
  Receipt Date: 20100923
  Transmission Date: 20110411
  Serious: Yes (Hospitalization)
  Sender: FDA-Public Use
  Company Number: US-BIOGENIDEC-2010BI033069

PATIENT
  Age: 45 Year
  Sex: Female

DRUGS (17)
  1. TYSABRI [Suspect]
     Indication: MULTIPLE SCLEROSIS
     Route: 042
     Dates: start: 20080410
  2. PROVIGIL [Concomitant]
     Indication: FATIGUE
     Route: 048
  3. WELLBUTRIN XL [Concomitant]
     Route: 048
  4. VESICARE [Concomitant]
     Route: 048
  5. MAXALT-MLT [Concomitant]
     Indication: MIGRAINE
     Route: 048
  6. BACLOFEN [Concomitant]
     Indication: MUSCLE SPASTICITY
     Route: 048
  7. AMBIEN [Concomitant]
     Indication: SLEEP DISORDER
     Route: 048
  8. TYLENOL [Concomitant]
     Route: 048
  9. MIRTAZAPINE [Concomitant]
     Route: 048
  10. ATENOLOL [Concomitant]
     Route: 048
  11. TRAMADOL HCL [Concomitant]
     Indication: PAIN
     Route: 048
  12. REMERON [Concomitant]
     Route: 048
  13. MULTI-VITAMINS [Concomitant]
  14. VITAMIN D [Concomitant]
  15. CALCIUM [Concomitant]
  16. VITAMIN B [Concomitant]
     Route: 060
  17. AMPRYA [Concomitant]
     Route: 048

REACTIONS (1)
  - CONVULSION [None]
